FAERS Safety Report 8333019-9 (Version None)
Quarter: 2012Q2

REPORT INFORMATION
  Report Type: 
  Country: None (occurrence: None)
  Receive Date: 20120503
  Receipt Date: 20120424
  Transmission Date: 20120825
  Serious: Yes (Other)
  Sender: FDA-Public Use
  Company Number: PHEH2012US007179

PATIENT
  Sex: Female

DRUGS (6)
  1. GILENYA [Suspect]
     Indication: MULTIPLE SCLEROSIS
     Dosage: 0.5 MG, QD
     Route: 048
     Dates: start: 20110606, end: 20120327
  2. BACLOFEN [Concomitant]
     Dosage: 20 MG, QHS
     Route: 048
  3. FISH OIL [Concomitant]
  4. VITAMINS NOS [Concomitant]
  5. NSAID'S [Concomitant]
  6. HYDROCODONE TYLENOL [Concomitant]

REACTIONS (8)
  - HEPATIC STEATOSIS [None]
  - PORTAL TRIADITIS [None]
  - BLOOD ALKALINE PHOSPHATASE INCREASED [None]
  - ASPARTATE AMINOTRANSFERASE INCREASED [None]
  - NEUTROPHIL PERCENTAGE INCREASED [None]
  - HEPATIC ENZYME INCREASED [None]
  - ALANINE AMINOTRANSFERASE INCREASED [None]
  - LYMPHOCYTE COUNT DECREASED [None]
